FAERS Safety Report 4488779-4 (Version None)
Quarter: 2004Q4

REPORT INFORMATION
  Report Type: 
  Country: None (occurrence: None)
  Receive Date: 20041029
  Receipt Date: 20041019
  Transmission Date: 20050328
  Serious: Yes (Life-Threatening, Hospitalization)
  Sender: FDA-Public Use
  Company Number: CA-JNJFOC-20040702041

PATIENT
  Sex: Female

DRUGS (5)
  1. REMICADE [Suspect]
     Indication: CROHN'S DISEASE
     Route: 042
  2. DIDROCAL [Concomitant]
  3. DIDROCAL [Concomitant]
  4. L-THYROXINE [Concomitant]
  5. PREDNISONE [Concomitant]
     Route: 049

REACTIONS (1)
  - BREAST CANCER [None]
